FAERS Safety Report 5248727-6 (Version None)
Quarter: 2007Q1

REPORT INFORMATION
  Report Type: 
  Country: None (occurrence: None)
  Receive Date: 20070222
  Receipt Date: 20070208
  Transmission Date: 20070707
  Serious: Yes (Other)
  Sender: FDA-Public Use
  Company Number: 236489

PATIENT
  Age: 87 Year
  Sex: Male

DRUGS (2)
  1. RITUXAN [Suspect]
     Indication: LYMPHOMA
  2. DECADRON [Concomitant]

REACTIONS (3)
  - INFUSION RELATED REACTION [None]
  - PULSE ABSENT [None]
  - TRANSIENT ISCHAEMIC ATTACK [None]
